FAERS Safety Report 11722464 (Version 5)
Quarter: 2015Q4

REPORT INFORMATION
  Report Type: Spontaneous
  Country: JP (occurrence: JP)
  Receive Date: 20151111
  Receipt Date: 20151224
  Transmission Date: 20160304
  Serious: Yes (Death, Hospitalization)
  Sender: FDA-Public Use
  Company Number: PHJP2015JP019801

PATIENT
  Age: 55 Year
  Sex: Female
  Weight: 38 kg

DRUGS (11)
  1. PREDNISOLONE. [Concomitant]
     Active Substance: PREDNISOLONE
     Indication: PRODUCT USED FOR UNKNOWN INDICATION
     Dosage: 30 MG, QD
     Route: 048
     Dates: start: 20140421, end: 20150330
  2. NEORAL [Suspect]
     Active Substance: CYCLOSPORINE
     Indication: APLASIA PURE RED CELL
     Dosage: 150 MG, QD
     Route: 048
     Dates: start: 20141008, end: 20141021
  3. NEORAL [Suspect]
     Active Substance: CYCLOSPORINE
     Indication: AUTOIMMUNE DISORDER
  4. TALION [Concomitant]
     Active Substance: BEPOTASTINE
     Indication: PRODUCT USED FOR UNKNOWN INDICATION
     Dosage: 10 MG, BID
     Route: 048
     Dates: start: 20140421, end: 20150330
  5. CLARITIN [Concomitant]
     Active Substance: LORATADINE
     Indication: PRODUCT USED FOR UNKNOWN INDICATION
     Dosage: 10 MG, QD
     Route: 048
     Dates: start: 20140421, end: 20150330
  6. PROMAC                                  /JPN/ [Concomitant]
     Indication: PRODUCT USED FOR UNKNOWN INDICATION
     Dosage: 75 MG, BID
     Route: 048
     Dates: start: 20140428, end: 20141021
  7. HIRUDOID [Concomitant]
     Active Substance: GLYCOSAMINOGLYCANS
     Indication: PRODUCT USED FOR UNKNOWN INDICATION
     Dosage: 200 G, QD
     Route: 061
     Dates: start: 20140430, end: 20141008
  8. CRAVIT [Concomitant]
     Active Substance: LEVOFLOXACIN
     Indication: PRODUCT USED FOR UNKNOWN INDICATION
     Dosage: GTT
     Route: 047
     Dates: start: 20140917, end: 20150123
  9. BAKTAR [Concomitant]
     Active Substance: SULFAMETHOXAZOLE\TRIMETHOPRIM
     Indication: PRODUCT USED FOR UNKNOWN INDICATION
     Dosage: UNK
     Route: 048
     Dates: start: 20140808, end: 20150330
  10. PARIET [Concomitant]
     Active Substance: RABEPRAZOLE SODIUM
     Indication: PRODUCT USED FOR UNKNOWN INDICATION
     Dosage: 10 MG, QD
     Route: 048
     Dates: start: 20140502, end: 20141021
  11. DIACORT [Concomitant]
     Active Substance: DIFLORASONE DIACETATE
     Indication: PRODUCT USED FOR UNKNOWN INDICATION
     Dosage: 100 G, QD
     Route: 061
     Dates: start: 20140421, end: 20150330

REACTIONS (6)
  - Progressive multifocal leukoencephalopathy [Fatal]
  - JC virus infection [Unknown]
  - Condition aggravated [Unknown]
  - Demyelination [Fatal]
  - Product use issue [Unknown]
  - Aphasia [Fatal]

NARRATIVE: CASE EVENT DATE: 20141017
